FAERS Safety Report 5764323-6 (Version None)
Quarter: 2008Q2

REPORT INFORMATION
  Report Type: 
  Country: None (occurrence: None)
  Receive Date: 20080610
  Receipt Date: 20080514
  Transmission Date: 20081010
  Serious: No
  Sender: FDA-Public Use
  Company Number: MY-BOEHRINGER INGELHEIM GMBH, GERMANY-2008-BP-08210SG

PATIENT

DRUGS (1)
  1. SPIRIVA [Suspect]

REACTIONS (3)
  - DRY MOUTH [None]
  - DYSGEUSIA [None]
  - HYPOAESTHESIA ORAL [None]
